FAERS Safety Report 21499494 (Version 1)
Quarter: 2022Q4

REPORT INFORMATION
  Report Type: Spontaneous
  Country: US (occurrence: None)
  Receive Date: 20221024
  Receipt Date: 20221024
  Transmission Date: 20230113
  Serious: Yes (Death, Hospitalization)
  Sender: FDA-Public Use
  Company Number: None

PATIENT
  Age: 50 Year
  Sex: Male
  Weight: 53.3 kg

DRUGS (7)
  1. ZIRABEV [Suspect]
     Active Substance: BEVACIZUMAB-BVZR
     Indication: Adenocarcinoma of colon
     Dosage: FREQUENCY : ONCE;?
     Route: 042
     Dates: start: 20221012, end: 20221012
  2. CAMPTOSAR [Concomitant]
     Active Substance: IRINOTECAN HYDROCHLORIDE
     Dates: start: 20220415, end: 20221012
  3. FLUOROURACIL [Concomitant]
     Active Substance: FLUOROURACIL
     Dates: start: 20220415, end: 20221012
  4. PANITUMUMAB [Concomitant]
     Active Substance: PANITUMUMAB
     Dates: start: 20220415, end: 20220916
  5. folinic acid (Leucovorin) [Concomitant]
     Dates: start: 20220415, end: 20221012
  6. OXALIPLATIN [Concomitant]
     Active Substance: OXALIPLATIN
     Dates: start: 20221012, end: 20221012
  7. PEGFILGRASTIM [Concomitant]
     Active Substance: PEGFILGRASTIM
     Dates: start: 20220613, end: 20221017

REACTIONS (4)
  - Failure to thrive [None]
  - Seizure [None]
  - Postictal state [None]
  - Intestinal perforation [None]

NARRATIVE: CASE EVENT DATE: 20221018
